FAERS Safety Report 14984201 (Version 3)
Quarter: 2019Q1

REPORT INFORMATION
  Report Type: Report from Study
  Country: FR (occurrence: FR)
  Receive Date: 20180607
  Receipt Date: 20190125
  Transmission Date: 20190417
  Serious: Yes (Death, Hospitalization, Other)
  Sender: FDA-Public Use
  Company Number: FR-JAZZ-2017-FR-015305

PATIENT

DRUGS (1)
  1. DEFITELIO [Suspect]
     Active Substance: DEFIBROTIDE SODIUM
     Indication: VENOOCCLUSIVE DISEASE
     Dosage: 22.2 MG/KG, QD
     Route: 042
     Dates: start: 20150924, end: 20150926

REACTIONS (3)
  - Lung disorder [Fatal]
  - Multiple organ dysfunction syndrome [Unknown]
  - Respiratory distress [Fatal]

NARRATIVE: CASE EVENT DATE: 20150926
